FAERS Safety Report 7723001-4 (Version None)
Quarter: 2011Q3

REPORT INFORMATION
  Report Type: 
  Country: None (occurrence: None)
  Receive Date: 20110901
  Receipt Date: 20110824
  Transmission Date: 20111222
  Serious: Yes (Hospitalization)
  Sender: FDA-Public Use
  Company Number: US-JNJFOC-20110811409

PATIENT
  Sex: Female
  Weight: 27.4 kg

DRUGS (3)
  1. REMICADE [Suspect]
     Indication: INFLAMMATORY BOWEL DISEASE
     Route: 042
     Dates: start: 20110407
  2. PREDNISONE [Concomitant]
  3. MERCAPTOPURINE [Concomitant]

REACTIONS (1)
  - COLITIS [None]
